FAERS Safety Report 11682652 (Version 4)
Quarter: 2016Q1

REPORT INFORMATION
  Report Type: Report from Study
  Country: JP (occurrence: JP)
  Receive Date: 20151029
  Receipt Date: 20160128
  Transmission Date: 20160525
  Serious: Yes (Hospitalization, Disabling)
  Sender: FDA-Public Use
  Company Number: JP-EISAI MEDICAL RESEARCH-EC-2015-011616

PATIENT
  Age: 66 Year
  Sex: Male
  Weight: 56 kg

DRUGS (12)
  1. REBAMIPIDE [Concomitant]
     Active Substance: REBAMIPIDE
  2. AZUNOL GARGLE [Concomitant]
  3. CARBOPLATIN. [Concomitant]
     Active Substance: CARBOPLATIN
  4. MAGMITT [Concomitant]
     Active Substance: MAGNESIUM OXIDE
  5. LOXOPROFEN [Concomitant]
     Active Substance: LOXOPROFEN
  6. ARCRANE [Concomitant]
  7. ENSURE H [Concomitant]
  8. POSTERISAN [Concomitant]
     Active Substance: LIDOCAINE
  9. LENVIMA [Suspect]
     Active Substance: LENVATINIB
     Indication: ANAPLASTIC THYROID CANCER
     Route: 048
     Dates: start: 20150721, end: 20150804
  10. LENVIMA [Suspect]
     Active Substance: LENVATINIB
     Route: 048
     Dates: start: 20150809
  11. PACLITAXEL. [Concomitant]
     Active Substance: PACLITAXEL
  12. AZILVA [Concomitant]
     Active Substance: AZILSARTAN KAMEDOXOMIL

REACTIONS (4)
  - Haemorrhoidal haemorrhage [Recovering/Resolving]
  - Anal ulcer [Recovering/Resolving]
  - Arterial haemorrhage [Recovering/Resolving]
  - Anal fissure [Recovering/Resolving]

NARRATIVE: CASE EVENT DATE: 201510
